FAERS Safety Report 6417665-5 (Version None)
Quarter: 2009Q4

REPORT INFORMATION
  Report Type: 
  Country: None (occurrence: None)
  Receive Date: 20091028
  Receipt Date: 20091015
  Transmission Date: 20100525
  Serious: Yes (Other)
  Sender: FDA-Public Use
  Company Number: PHHY2009GB42852

PATIENT
  Sex: Female

DRUGS (1)
  1. ALISKIREN [Suspect]

REACTIONS (4)
  - ASTHENIA [None]
  - CEREBROVASCULAR ACCIDENT [None]
  - HYPOAESTHESIA [None]
  - PARAESTHESIA [None]
